FAERS Safety Report 9146792 (Version 1)
Quarter: 2013Q1

REPORT INFORMATION
  Report Type: Spontaneous
  Country: US (occurrence: None)
  Receive Date: 20130305
  Receipt Date: 20130305
  Transmission Date: 20140127
  Serious: Yes (Death, Life-Threatening, Hospitalization)
  Sender: FDA-Public Use
  Company Number: None

PATIENT
  Age: 79 Year
  Sex: Male
  Weight: 74.6 kg

DRUGS (1)
  1. ROMIPLOSTIM [Suspect]
     Indication: IDIOPATHIC THROMBOCYTOPENIC PURPURA
     Dosage: EVERY WEEK
     Route: 058
     Dates: start: 20110106, end: 20121217

REACTIONS (5)
  - Abdominal pain [None]
  - Acute myeloid leukaemia [None]
  - Pulmonary embolism [None]
  - Respiratory failure [None]
  - Gastrointestinal haemorrhage [None]
